FAERS Safety Report 11742838 (Version 2)
Quarter: 2015Q4

REPORT INFORMATION
  Report Type: Spontaneous
  Country: JP (occurrence: JP)
  Receive Date: 20151116
  Receipt Date: 20151214
  Transmission Date: 20160304
  Serious: Yes (Other)
  Sender: FDA-Public Use
  Company Number: JP-TEVA-609729ISR

PATIENT
  Age: 64 Year
  Sex: Male
  Weight: 68 kg

DRUGS (12)
  1. CISPLATIN. [Suspect]
     Active Substance: CISPLATIN
     Indication: BLADDER CANCER
     Dosage: 70 MG/M^2 ON DAY 1 EVERY 3 WEEKS
  2. SENNOSIDES. [Concomitant]
     Active Substance: SENNOSIDES
     Dosage: 24 MILLIGRAM DAILY; 24 MG/DAY
  3. WARFARIN [Interacting]
     Active Substance: WARFARIN
     Indication: ANTICOAGULANT THERAPY
     Dosage: 1 MILLIGRAM DAILY; 1 MG/DAY
  4. APREPITANT. [Concomitant]
     Active Substance: APREPITANT
     Dosage: 125 MG ON DAYS 1, 80 MG ON DAYS 2 AND 3
  5. WARFARIN [Interacting]
     Active Substance: WARFARIN
     Indication: ANTICOAGULANT THERAPY
     Dosage: 1 MILLIGRAM DAILY; 1 MG/DAY
  6. PITAVASTATIN CALCIUM [Concomitant]
     Active Substance: PITAVASTATIN CALCIUM
     Dosage: 1 MILLIGRAM DAILY; 1 MG/DAY
  7. NITRAZEPAM [Concomitant]
     Active Substance: NITRAZEPAM
     Dosage: 5 MILLIGRAM DAILY; 5 MG/DAY
  8. WARFARIN [Interacting]
     Active Substance: WARFARIN
     Indication: ANTICOAGULANT THERAPY
     Dosage: 3 MILLIGRAM DAILY; 3 MG/DAY
  9. GEMCITABINE [Concomitant]
     Active Substance: GEMCITABINE\GEMCITABINE HYDROCHLORIDE
     Indication: BLADDER CANCER
     Dosage: 1000MG/M^2 ON DAYS 1 AND 8 EVERY 3 WEEKS
  10. GRANISETRON [Concomitant]
     Active Substance: GRANISETRON
     Dosage: 3 MG ON DAYS 1-3 AND 8
  11. DEXAMETHASONE. [Interacting]
     Active Substance: DEXAMETHASONE
     Indication: BLADDER CANCER
     Dosage: 6.6 MG ON DAYS 1 AND 8
  12. GEMCITABINE [Concomitant]
     Active Substance: GEMCITABINE\GEMCITABINE HYDROCHLORIDE
     Indication: BLADDER CANCER
     Dosage: 1000MG/M^2ON DAYS 1 AND 8

REACTIONS (2)
  - Drug interaction [Unknown]
  - Prothrombin time ratio increased [Unknown]
